FAERS Safety Report 19877263 (Version 2)
Quarter: 2021Q3

REPORT INFORMATION
  Report Type: Spontaneous
  Country: US (occurrence: US)
  Receive Date: 20210924
  Receipt Date: 20210930
  Transmission Date: 20211014
  Serious: No
  Sender: FDA-Public Use
  Company Number: US-AIMMUNE THERAPEUTICS, INC.-2021AIMT00550

PATIENT

DRUGS (3)
  1. PALFORZIA [Suspect]
     Active Substance: PEANUT
     Indication: FOOD ALLERGY
     Dosage: 12 MG, 1X/DAY
     Route: 048
     Dates: start: 202109, end: 20210915
  2. PALFORZIA [Suspect]
     Active Substance: PEANUT
     Dosage: 12 MG, 1X/DAY, DECREASED DUE TO EVENT
     Route: 048
     Dates: start: 20210916
  3. PALFORZIA [Suspect]
     Active Substance: PEANUT
     Dosage: 12 MG, 1X/DAY, LAST DOSE PRIOR EVENT
     Route: 048
     Dates: start: 20210913, end: 20210913

REACTIONS (1)
  - Throat irritation [Unknown]

NARRATIVE: CASE EVENT DATE: 20210913
